FAERS Safety Report 5431647-1 (Version None)
Quarter: 2007Q3

REPORT INFORMATION
  Report Type: 
  Country: None (occurrence: None)
  Receive Date: 20070828
  Receipt Date: 20070813
  Transmission Date: 20080115
  Serious: Yes (Other)
  Sender: FDA-Public Use
  Company Number: 07-001688

PATIENT
  Age: 81 Year
  Sex: Male

DRUGS (10)
  1. DORYX [Suspect]
     Indication: ULCERATIVE KERATITIS
     Dosage: 100 MG BID, ORAL
     Route: 048
  2. WARFARIN SODIUM [Suspect]
  3. LOTEPREDNOL (LOTEPREDNOL) [Concomitant]
  4. NIASPAN [Concomitant]
  5. ATENOLOL [Concomitant]
  6. ZESTRIL [Concomitant]
  7. IMDUR [Concomitant]
  8. PREVACID [Concomitant]
  9. PROSCAR [Concomitant]
  10. ZOCOR [Concomitant]

REACTIONS (5)
  - CONTUSION [None]
  - DRUG EFFECT INCREASED [None]
  - DRUG INTERACTION POTENTIATION [None]
  - INTERNATIONAL NORMALISED RATIO INCREASED [None]
  - SCAR [None]
